FAERS Safety Report 11582834 (Version 3)
Quarter: 2015Q4

REPORT INFORMATION
  Report Type: Report from Study
  Country: CO (occurrence: CO)
  Receive Date: 20151001
  Receipt Date: 20151030
  Transmission Date: 20160304
  Serious: Yes (Death, Other)
  Sender: FDA-Public Use
  Company Number: CO-ASTRAZENECA-2015SE93152

PATIENT
  Age: 28656 Day
  Sex: Female

DRUGS (4)
  1. BRILINTA [Suspect]
     Active Substance: TICAGRELOR
     Indication: INFARCTION
     Route: 048
     Dates: start: 20150126, end: 20150610
  2. LOSARTAN. [Concomitant]
     Active Substance: LOSARTAN
  3. ASA [Concomitant]
     Active Substance: ASPIRIN
  4. ATORVASTATIN [Concomitant]
     Active Substance: ATORVASTATIN

REACTIONS (2)
  - Infarction [Unknown]
  - Death [Fatal]

NARRATIVE: CASE EVENT DATE: 20150610
